FAERS Safety Report 8247996-8 (Version None)
Quarter: 2012Q1

REPORT INFORMATION
  Report Type: 
  Country: None (occurrence: None)
  Receive Date: 20120330
  Receipt Date: 20120321
  Transmission Date: 20120608
  Serious: Yes (Death, Hospitalization)
  Sender: FDA-Public Use
  Company Number: IL-JNJFOC-20120310228

PATIENT
  Age: 26 Year
  Sex: Female

DRUGS (5)
  1. MERCAPTOPURINE [Suspect]
     Indication: CROHN'S DISEASE
  2. INFLIXIMAB, RECOMBINANT [Suspect]
     Indication: CROHN'S DISEASE
     Route: 042
  3. AZATHIOPRINE [Suspect]
     Indication: CROHN'S DISEASE
  4. GLUCOCORTICOIDS [Suspect]
     Indication: CROHN'S DISEASE
  5. METHOTREXATE [Suspect]
     Indication: CROHN'S DISEASE

REACTIONS (5)
  - NEUROENDOCRINE CARCINOMA METASTATIC [None]
  - CUSHING'S SYNDROME [None]
  - EYE INFECTION FUNGAL [None]
  - BLINDNESS [None]
  - HEPATIC FAILURE [None]
